FAERS Safety Report 24978146 (Version 1)
Quarter: 2025Q1

REPORT INFORMATION
  Report Type: Spontaneous
  Country: US (occurrence: US)
  Receive Date: 20250217
  Receipt Date: 20250217
  Transmission Date: 20250409
  Serious: Yes (Death)
  Sender: LABORATOIRES SERB
  Company Number: US-SERB S.A.S.-2170370

PATIENT
  Sex: Female

DRUGS (1)
  1. CROFAB [Suspect]
     Active Substance: AGKISTRODON PISCIVORUS IMMUNE FAB ANTIVENIN (OVINE)\CROTALUS ADAMANTEUS IMMUNE FAB ANTIVENIN (OVINE)
     Indication: Snake bite

REACTIONS (3)
  - Anaphylactic reaction [Fatal]
  - Pulseless electrical activity [Fatal]
  - Metabolic acidosis [Fatal]
